FAERS Safety Report 9498001 (Version 2)
Quarter: 2013Q4

REPORT INFORMATION
  Report Type: Spontaneous
  Country: US (occurrence: US)
  Receive Date: 20130904
  Receipt Date: 20131106
  Transmission Date: 20140711
  Serious: No
  Sender: FDA-Public Use
  Company Number: US-AMGEN-USASP2013059547

PATIENT
  Age: 28 Year
  Sex: Female
  Weight: 60.77 kg

DRUGS (3)
  1. ENBREL [Suspect]
     Indication: RHEUMATOID ARTHRITIS
     Dosage: 50 MG, QWK
     Route: 065
     Dates: start: 2008
  2. TYLENOL                            /00020001/ [Concomitant]
     Dosage: UNK
     Route: 048
  3. ALEVE [Concomitant]
     Indication: PAIN
     Dosage: PRN

REACTIONS (3)
  - Injection site mass [Recovered/Resolved]
  - Wrong technique in drug usage process [Not Recovered/Not Resolved]
  - Injection site haemorrhage [Recovered/Resolved]
